FAERS Safety Report 17293519 (Version 2)
Quarter: 2020Q1

REPORT INFORMATION
  Report Type: Spontaneous
  Country: JP (occurrence: JP)
  Receive Date: 20200121
  Receipt Date: 20200130
  Transmission Date: 20200409
  Serious: Yes (Other)
  Sender: FDA-Public Use
  Company Number: JP-ROCHE-2524884

PATIENT
  Age: 66 Year
  Sex: Male

DRUGS (2)
  1. CIBENOL [Concomitant]
     Active Substance: CIFENLINE
     Indication: TACHYCARDIA PAROXYSMAL
     Dosage: UNCERTAIN DOSAGE AND SINGLE USE
     Route: 065
  2. TAMIFLU [Suspect]
     Active Substance: OSELTAMIVIR PHOSPHATE
     Indication: INFLUENZA
     Dosage: DOSAGE IS UNCERTAIN.
     Route: 048
     Dates: start: 20200106, end: 20200107

REACTIONS (1)
  - Tachycardia [Recovered/Resolved]

NARRATIVE: CASE EVENT DATE: 20200107
